FAERS Safety Report 7458631-0 (Version None)
Quarter: 2011Q2

REPORT INFORMATION
  Report Type: 
  Country: None (occurrence: None)
  Receive Date: 20110504
  Receipt Date: 20110428
  Transmission Date: 20111010
  Serious: Yes (Life-Threatening, Hospitalization, Other)
  Sender: FDA-Public Use
  Company Number: FR-PFIZER INC-2011091374

PATIENT
  Age: 81 Year
  Sex: Male

DRUGS (8)
  1. APROVEL [Suspect]
     Indication: HYPERTENSION
     Dosage: 150 MG, 1X/DAY
     Route: 048
  2. DRONEDARONE [Suspect]
     Indication: ARRHYTHMIA
     Dosage: 400 MG, 2X/DAY
     Route: 048
     Dates: start: 20101124, end: 20110204
  3. CABERGOLINE [Suspect]
     Indication: PROLACTINOMA
     Dosage: 1 DF, 1X/DAY
     Route: 048
  4. LEVOTHYROX [Suspect]
     Indication: HYPOTHYROIDISM
     Dosage: 50 UG, 1X/DAY
     Route: 048
  5. DOXAZOSIN MESYLATE [Suspect]
     Indication: BENIGN PROSTATIC HYPERPLASIA
     Dosage: 4 MG, 1X/DAY
     Route: 048
  6. PRAVASTATIN SODIUM [Suspect]
     Indication: HYPERCHOLESTEROLAEMIA
     Dosage: 1 DF, 1X/DAY
     Route: 048
  7. DOXAZOSIN MESYLATE [Suspect]
  8. PREVISCAN [Suspect]
     Indication: ARRHYTHMIA
     Dosage: UNK
     Route: 048
     Dates: start: 20101124, end: 20110101

REACTIONS (5)
  - METASTASES TO LIVER [None]
  - METASTASES TO KIDNEY [None]
  - SQUAMOUS CELL CARCINOMA [None]
  - ATRIAL FIBRILLATION [None]
  - DIARRHOEA [None]
